FAERS Safety Report 12082948 (Version 3)
Quarter: 2016Q1

REPORT INFORMATION
  Report Type: Spontaneous
  Country: US (occurrence: US)
  Receive Date: 20160217
  Receipt Date: 20160328
  Transmission Date: 20160526
  Serious: No
  Sender: FDA-Public Use
  Company Number: US-PFIZER INC-2016072495

PATIENT
  Age: 29 Year
  Sex: Male
  Weight: 94 kg

DRUGS (3)
  1. LYRICA [Suspect]
     Active Substance: PREGABALIN
     Indication: PAIN
     Dosage: 150 MG, 3X/DAY; 150 MG, CAPSULE, ORALLY, THREE TIMES A DAY
     Route: 048
     Dates: start: 2015
  2. SEROQUEL [Concomitant]
     Active Substance: QUETIAPINE FUMARATE
     Indication: INSOMNIA
     Dosage: 50 MG, 1X/DAY; 50 MG, TABLET, ORALLY, ONCE AT BED TIME
     Route: 048
     Dates: start: 20160108
  3. AXIRON [Concomitant]
     Active Substance: TESTOSTERONE
     Indication: BLOOD TESTOSTERONE DECREASED
     Dosage: 90 MG, 1X/DAY; 90 MG PUT IN ON HIS SKIN, ONCE A DAY
     Dates: start: 201501

REACTIONS (2)
  - Memory impairment [Not Recovered/Not Resolved]
  - Sexual dysfunction [Not Recovered/Not Resolved]

NARRATIVE: CASE EVENT DATE: 201510
